FAERS Safety Report 18000498 (Version 1)
Quarter: 2020Q3

REPORT INFORMATION
  Report Type: Spontaneous
  Country: US (occurrence: US)
  Receive Date: 20200709
  Receipt Date: 20200709
  Transmission Date: 20201103
  Serious: Yes (Other)
  Sender: FDA-Public Use
  Company Number: US-GLAXOSMITHKLINE-US2019AMR240515

PATIENT
  Sex: Female

DRUGS (1)
  1. BENLYSTA [Suspect]
     Active Substance: BELIMUMAB
     Indication: PRODUCT USED FOR UNKNOWN INDICATION
     Dosage: UNK, WE
     Route: 058
     Dates: start: 2015

REACTIONS (10)
  - Pain in extremity [Unknown]
  - Influenza like illness [Unknown]
  - Bone pain [Unknown]
  - Respiratory tract congestion [Unknown]
  - Feeling abnormal [Unknown]
  - Malaise [Unknown]
  - Skin disorder [Unknown]
  - Systemic lupus erythematosus [Recovering/Resolving]
  - Nausea [Unknown]
  - Urticaria [Unknown]
